FAERS Safety Report 7050325-9 (Version None)
Quarter: 2010Q4

REPORT INFORMATION
  Report Type: 
  Country: None (occurrence: None)
  Receive Date: 20101018
  Receipt Date: 20101007
  Transmission Date: 20110411
  Serious: Yes (Other)
  Sender: FDA-Public Use
  Company Number: FR-BAYER-201041943GPV

PATIENT
  Age: 18 Year
  Sex: Female
  Weight: 70 kg

DRUGS (1)
  1. BILTRICIDE [Suspect]
     Indication: TAENIASIS
     Dosage: TOTAL DAILY DOSE: 4.5 DF
     Route: 048
     Dates: start: 20101006, end: 20101006

REACTIONS (3)
  - CONVERSION DISORDER [None]
  - DELIRIUM [None]
  - INCOHERENT [None]
